FAERS Safety Report 13747487 (Version 3)
Quarter: 2017Q4

REPORT INFORMATION
  Report Type: Spontaneous
  Country: DE (occurrence: DE)
  Receive Date: 20170712
  Receipt Date: 20171109
  Transmission Date: 20180320
  Serious: Yes (Hospitalization, Other)
  Sender: FDA-Public Use
  Company Number: DE-ABBVIE-17K-062-2036420-00

PATIENT
  Age: 67 Year
  Sex: Female

DRUGS (2)
  1. HUMIRA [Suspect]
     Active Substance: ADALIMUMAB
     Indication: PSORIASIS
     Route: 058
     Dates: start: 201610, end: 20170710
  2. NOVAMIN (PROCHLORPERAZINE) [Concomitant]
     Active Substance: PROCHLORPERAZINE
     Indication: PRODUCT USED FOR UNKNOWN INDICATION

REACTIONS (30)
  - Gastritis erosive [Unknown]
  - Chest X-ray abnormal [Unknown]
  - Pericardial effusion [Unknown]
  - Computerised tomogram abnormal [Unknown]
  - Osteoarthritis [Unknown]
  - Cough [Unknown]
  - Pleurisy [Recovering/Resolving]
  - Haemothorax [Recovering/Resolving]
  - Accident [Not Recovered/Not Resolved]
  - Pleural effusion [Recovering/Resolving]
  - Hospitalisation [Unknown]
  - Splenomegaly [Unknown]
  - Breast haemorrhage [Unknown]
  - Craniocerebral injury [Unknown]
  - Loss of consciousness [Recovered/Resolved]
  - Cryptogenic cirrhosis [Unknown]
  - Lung disorder [Not Recovered/Not Resolved]
  - Renal cyst [Unknown]
  - Limb injury [Unknown]
  - Fall [Unknown]
  - Dyspnoea [Unknown]
  - Hepatic cirrhosis [Not Recovered/Not Resolved]
  - Tuberculosis [Unknown]
  - Breast haematoma [Unknown]
  - Contusion [Unknown]
  - Portal hypertension [Unknown]
  - Spinal osteoarthritis [Unknown]
  - Varices oesophageal [Unknown]
  - Breath sounds abnormal [Unknown]
  - Lung disorder [Unknown]

NARRATIVE: CASE EVENT DATE: 2017
